FAERS Safety Report 12651584 (Version 2)
Quarter: 2016Q4

REPORT INFORMATION
  Report Type: Spontaneous
  Country: PE (occurrence: PE)
  Receive Date: 20160815
  Receipt Date: 20161108
  Transmission Date: 20170207
  Serious: Yes (Other)
  Sender: FDA-Public Use
  Company Number: PE-PFIZER INC-2016379264

PATIENT
  Age: 76 Year
  Sex: Female

DRUGS (3)
  1. LOPID [Suspect]
     Active Substance: GEMFIBROZIL
     Dosage: 900 MG, UNK
  2. LOPID [Suspect]
     Active Substance: GEMFIBROZIL
     Dosage: 600 MG, UNK
  3. LIPITOR [Suspect]
     Active Substance: ATORVASTATIN CALCIUM
     Dosage: 80 MG, UNK

REACTIONS (4)
  - Arthropathy [Unknown]
  - Visual impairment [Unknown]
  - Headache [Unknown]
  - Hypoaesthesia [Unknown]
